FAERS Safety Report 5709917-9 (Version None)
Quarter: 2008Q2

REPORT INFORMATION
  Report Type: 
  Country: None (occurrence: None)
  Receive Date: 20080418
  Receipt Date: 20070504
  Transmission Date: 20081010
  Serious: No
  Sender: FDA-Public Use
  Company Number: US-ASTRAZENECA-2007UW09479

PATIENT
  Age: 83 Year
  Sex: Female
  Weight: 56.7 kg

DRUGS (1)
  1. TOPROL-XL [Suspect]
     Indication: BLOOD PRESSURE DIASTOLIC INCREASED
     Route: 048

REACTIONS (1)
  - DIPLOPIA [None]
